FAERS Safety Report 20191890 (Version 3)
Quarter: 2022Q1

REPORT INFORMATION
  Report Type: Spontaneous
  Country: US (occurrence: US)
  Receive Date: 20211216
  Receipt Date: 20220318
  Transmission Date: 20220424
  Serious: Yes (Other)
  Sender: FDA-Public Use
  Company Number: US-JNJFOC-20211221012

PATIENT
  Age: 52 Year
  Sex: Male

DRUGS (9)
  1. STELARA [Suspect]
     Active Substance: USTEKINUMAB
     Indication: Colitis ulcerative
     Route: 058
     Dates: start: 20210308
  2. STELARA [Suspect]
     Active Substance: USTEKINUMAB
  3. AMITRIPTYLINE [Concomitant]
     Active Substance: AMITRIPTYLINE
     Indication: Abdominal pain upper
     Dates: start: 20210322
  4. AMITRIPTYLINE [Concomitant]
     Active Substance: AMITRIPTYLINE
     Indication: Dyspepsia
  5. MOMETASONE FUROATE [Concomitant]
     Active Substance: MOMETASONE FUROATE
     Indication: Hypersensitivity
     Dates: start: 2018
  6. SUDAFED [Concomitant]
     Active Substance: PSEUDOEPHEDRINE HYDROCHLORIDE
     Indication: Multiple allergies
     Dates: start: 2018
  7. MELATONIN [Concomitant]
     Active Substance: MELATONIN
  8. VITAMIN B6 [Concomitant]
     Active Substance: PYRIDOXINE HYDROCHLORIDE
  9. VITAMIN B12 [Concomitant]
     Active Substance: CYANOCOBALAMIN

REACTIONS (2)
  - Thrombosis [Unknown]
  - Sinus disorder [Recovering/Resolving]

NARRATIVE: CASE EVENT DATE: 20210622
